FAERS Safety Report 13082184 (Version 2)
Quarter: 2017Q1

REPORT INFORMATION
  Report Type: Spontaneous
  Country: DE (occurrence: DE)
  Receive Date: 20170103
  Receipt Date: 20170103
  Transmission Date: 20170428
  Serious: Yes (Death)
  Sender: FDA-Public Use
  Company Number: DE-TEVA-723615GER

PATIENT
  Age: 75 Year
  Sex: Male

DRUGS (2)
  1. OLANZAPIN [Suspect]
     Active Substance: OLANZAPINE
     Dosage: INITIAL 40 MG/DAY, LATER 10 MG TO 20 MG/DAY
  2. HALDOL [Suspect]
     Active Substance: HALOPERIDOL
     Dates: end: 20160723

REACTIONS (14)
  - Gait disturbance [Fatal]
  - Bradyphrenia [Fatal]
  - Pneumonia aspiration [Fatal]
  - Body temperature increased [Fatal]
  - Dysarthria [Fatal]
  - Dysphagia [Fatal]
  - Cough [Fatal]
  - Sepsis [Fatal]
  - General physical health deterioration [Fatal]
  - Neuroleptic malignant syndrome [Fatal]
  - Dry mouth [Fatal]
  - Eye movement disorder [Fatal]
  - Cerebellar syndrome [Fatal]
  - Muscle rigidity [Fatal]

NARRATIVE: CASE EVENT DATE: 20160414
